FAERS Safety Report 21875201 (Version 2)
Quarter: 2023Q1

REPORT INFORMATION
  Report Type: Report from Study
  Country: US (occurrence: US)
  Receive Date: 20230117
  Receipt Date: 20230320
  Transmission Date: 20230417
  Serious: Yes (Hospitalization, Other)
  Sender: FDA-Public Use
  Company Number: US-ABBVIE-4270445

PATIENT
  Age: 63 Year
  Sex: Male
  Weight: 179 kg

DRUGS (2)
  1. RINVOQ [Suspect]
     Active Substance: UPADACITINIB
     Indication: Rheumatoid arthritis
     Dosage: EVERY MORNING
     Route: 048
     Dates: start: 20201228, end: 20230107
  2. RINVOQ [Suspect]
     Active Substance: UPADACITINIB
     Indication: Rheumatoid arthritis
     Dosage: EVERY MORNING
     Route: 048
     Dates: start: 20230203

REACTIONS (7)
  - Cystitis [Recovered/Resolved]
  - Gait inability [Unknown]
  - Rheumatoid arthritis [Recovered/Resolved]
  - Dehydration [Recovering/Resolving]
  - Ankle operation [Unknown]
  - Weight bearing difficulty [Recovering/Resolving]
  - Device breakage [Unknown]

NARRATIVE: CASE EVENT DATE: 20230101
